FAERS Safety Report 9319298 (Version 4)
Quarter: 2015Q1

REPORT INFORMATION
  Report Type: Report from Study
  Country: JP (occurrence: JP)
  Receive Date: 20130530
  Receipt Date: 20150225
  Transmission Date: 20150721
  Serious: Yes (Hospitalization, Other)
  Sender: FDA-Public Use
  Company Number: PHHO2013JP006987

PATIENT
  Age: 80 Year
  Sex: Male
  Weight: 79 kg

DRUGS (15)
  1. VICTOZA [Concomitant]
     Active Substance: LIRAGLUTIDE
     Indication: DIABETES MELLITUS
     Dosage: 0.9 MG, UNK
     Route: 048
     Dates: start: 20110805
  2. BLOPRESS [Concomitant]
     Active Substance: CANDESARTAN CILEXETIL
     Indication: HYPERTENSION
     Dosage: 4 MG
     Route: 048
     Dates: start: 20080906
  3. CRESTOR [Concomitant]
     Active Substance: ROSUVASTATIN CALCIUM
     Indication: HYPERLIPIDAEMIA
     Dosage: 2.5 MG, UNK
     Route: 048
     Dates: start: 20110928
  4. CELECOX [Concomitant]
     Active Substance: CELECOXIB
     Indication: ANALGESIC THERAPY
     Dosage: 200 MG, UNK
     Route: 048
     Dates: start: 20130510
  5. ALDACTONE [Concomitant]
     Active Substance: SPIRONOLACTONE
     Indication: CARDIAC FAILURE CHRONIC
     Dosage: 12.5 MG, UNK
     Route: 048
     Dates: start: 20090710
  6. ARTIST [Concomitant]
     Active Substance: CARVEDILOL
     Indication: HYPERTENSION
     Dosage: 5 MG, UNK
     Route: 048
     Dates: start: 20080917
  7. ILARIS [Suspect]
     Active Substance: CANAKINUMAB
     Indication: CARDIOVASCULAR EVENT PROPHYLAXIS
     Dosage: 50 MG, BID
     Route: 058
     Dates: start: 20120511
  8. CASODEX [Concomitant]
     Active Substance: BICALUTAMIDE
     Indication: PROPHYLAXIS
     Dosage: 80 MG
     Route: 048
     Dates: start: 20130517
  9. LASIX [Concomitant]
     Active Substance: FUROSEMIDE
     Indication: CARDIAC FAILURE CHRONIC
     Dosage: 20 MG, UNK
     Route: 048
     Dates: start: 20080906
  10. EUGLUCON [Concomitant]
     Active Substance: GLYBURIDE
     Indication: DIABETES MELLITUS
     Dosage: 5 MG, UNK
     Route: 048
     Dates: start: 20110805
  11. MAGNESIUM OXIDE. [Concomitant]
     Active Substance: MAGNESIUM OXIDE
     Indication: CONSTIPATION
     Dosage: 1 MG
     Route: 048
     Dates: start: 20110511
  12. MUCOSTA [Concomitant]
     Active Substance: REBAMIPIDE
     Indication: PROPHYLAXIS AGAINST GASTROINTESTINAL ULCER
     Dosage: 200 MG, UNK
     Route: 048
     Dates: start: 20130510
  13. PANTOSIN [Concomitant]
     Active Substance: PANTETHINE
     Indication: CONSTIPATION
     Dosage: 2 MG, UNK
     Route: 048
     Dates: start: 20130410
  14. BAYASPIRIN [Concomitant]
     Active Substance: ASPIRIN
     Indication: ISCHAEMIC HEART DISEASE PROPHYLAXIS
     Dosage: 100 MG, UNK
     Route: 048
     Dates: start: 20080903
  15. XYLOCAINE [Concomitant]
     Active Substance: LIDOCAINE HYDROCHLORIDE
     Indication: URETHRAL PAIN
     Dosage: UNK
     Route: 061
     Dates: start: 20130517

REACTIONS (2)
  - Prostate cancer metastatic [Not Recovered/Not Resolved]
  - Bone cancer metastatic [Not Recovered/Not Resolved]

NARRATIVE: CASE EVENT DATE: 20130301
